FAERS Safety Report 5675133-2 (Version None)
Quarter: 2008Q1

REPORT INFORMATION
  Report Type: 
  Country: None (occurrence: None)
  Receive Date: 20080320
  Receipt Date: 20080310
  Transmission Date: 20080703
  Serious: Yes (Death)
  Sender: FDA-Public Use
  Company Number: JP-ROCHE-548996

PATIENT
  Age: 68 Year
  Sex: Male
  Weight: 51 kg

DRUGS (4)
  1. XELODA [Suspect]
     Indication: RECTAL CANCER METASTATIC
     Dosage: DRUG NAME: XELODA 300.
     Route: 048
     Dates: start: 20080117, end: 20080207
  2. RHYTHMY [Concomitant]
     Route: 048
     Dates: start: 20070329
  3. SENNA EXTRACT [Concomitant]
     Dosage: DRUG NAME REPORTED: YODEL-S
     Route: 048
     Dates: start: 20070329
  4. DAI-KENCHU-TO [Concomitant]
     Route: 048
     Dates: start: 20070510

REACTIONS (2)
  - INTERSTITIAL LUNG DISEASE [None]
  - RESPIRATORY FAILURE [None]
